FAERS Safety Report 4320917-6 (Version None)
Quarter: 2004Q1

REPORT INFORMATION
  Report Type: 
  Country: None (occurrence: None)
  Receive Date: 20040322
  Receipt Date: 20040218
  Transmission Date: 20041129
  Serious: Yes (Other)
  Sender: FDA-Public Use
  Company Number: JP-BRISTOL-MYERS SQUIBB COMPANY-12517223

PATIENT
  Age: 84 Year
  Sex: Male

DRUGS (15)
  1. GATIFLO [Suspect]
     Indication: BRONCHITIS
     Route: 048
     Dates: start: 20040211, end: 20040211
  2. SPIROPENT [Concomitant]
     Route: 048
     Dates: start: 20040210
  3. BISOLVON [Concomitant]
     Route: 048
     Dates: start: 20040210
  4. MEDICON [Concomitant]
     Route: 048
     Dates: start: 20040210
  5. GASTER [Concomitant]
     Route: 048
     Dates: start: 20000703
  6. ADALAT [Concomitant]
     Route: 048
     Dates: start: 20000703
  7. MELBIN [Concomitant]
     Route: 048
     Dates: start: 20000703
  8. EUGLUCON [Concomitant]
     Route: 048
     Dates: start: 20000703
  9. DIAZEPAM [Concomitant]
     Route: 048
     Dates: start: 20000703
  10. ASPIRIN [Concomitant]
     Route: 048
     Dates: start: 20000703
  11. RENIVACE [Concomitant]
     Route: 048
     Dates: start: 20000703
  12. PANALDINE [Concomitant]
     Route: 048
     Dates: start: 20000703
  13. ACETATED RINGERS [Concomitant]
     Route: 042
     Dates: start: 20040203, end: 20040206
  14. MAXIPIME [Concomitant]
     Route: 042
     Dates: start: 20040203, end: 20040206
  15. PENICILLIN G FOR INJ [Concomitant]
     Dates: start: 20040207, end: 20040210

REACTIONS (4)
  - HYPOGLYCAEMIA [None]
  - LOSS OF CONSCIOUSNESS [None]
  - MEDICATION ERROR [None]
  - MYDRIASIS [None]
